FAERS Safety Report 8011663-6 (Version None)
Quarter: 2011Q4

REPORT INFORMATION
  Report Type: 
  Country: None (occurrence: None)
  Receive Date: 20111228
  Receipt Date: 20111017
  Transmission Date: 20120403
  Serious: No
  Sender: FDA-Public Use
  Company Number: US-BAYER-2011-101795

PATIENT
  Age: 60 Year
  Sex: Female

DRUGS (1)
  1. BILTRICIDE [Suspect]
     Indication: CESTODE INFECTION
     Dosage: TID FOR ONE DAY
     Dates: start: 20111011

REACTIONS (6)
  - MIGRAINE [None]
  - CHEST DISCOMFORT [None]
  - DYSPNOEA [None]
  - CONSTIPATION [None]
  - ABDOMINAL PAIN [None]
  - PYREXIA [None]
